FAERS Safety Report 4546388-2 (Version None)
Quarter: 2005Q1

REPORT INFORMATION
  Report Type: 
  Country: None (occurrence: None)
  Receive Date: 20050103
  Receipt Date: 20041209
  Transmission Date: 20050727
  Serious: Yes (Other)
  Sender: FDA-Public Use
  Company Number: GBS031013973

PATIENT
  Age: 82 Year
  Sex: Female

DRUGS (8)
  1. HUMULIN R [Suspect]
     Indication: DIABETES MELLITUS
     Dosage: 38 U/DAY
     Dates: start: 19960101
  2. HUMULIN 70/30 [Suspect]
     Indication: DIABETES MELLITUS
     Dosage: 36 U DAY
  3. ASPIRIN [Concomitant]
  4. ATORVASTATIN [Concomitant]
  5. PREDNISOLONE [Concomitant]
  6. DIDRONEL PMO [Concomitant]
  7. LOSARTAIN [Concomitant]
  8. PRAZOSIN HCL [Concomitant]

REACTIONS (8)
  - BLOOD GLUCOSE INCREASED [None]
  - DEVICE FAILURE [None]
  - HEART RATE INCREASED [None]
  - MEDICATION ERROR [None]
  - MIGRAINE [None]
  - PHARMACEUTICAL PRODUCT COMPLAINT [None]
  - TRANSIENT ISCHAEMIC ATTACK [None]
  - URINARY TRACT INFECTION [None]
